FAERS Safety Report 8882322 (Version 1)
Quarter: 2012Q4

REPORT INFORMATION
  Report Type: 
  Country: FR (occurrence: FR)
  Receive Date: 20121102
  Receipt Date: 20121102
  Transmission Date: 20130627
  Serious: Yes (Life-Threatening)
  Sender: FDA-Public Use
  Company Number: FR-ROCHE-1151203

PATIENT
  Age: 66 Year
  Sex: Male

DRUGS (8)
  1. MABTHERA [Suspect]
     Indication: B-CELL LYMPHOMA
     Route: 042
     Dates: start: 20120904, end: 20120904
  2. BLEOMYCIN [Suspect]
     Indication: B-CELL LYMPHOMA
     Route: 042
     Dates: start: 20120905, end: 20120905
  3. VELBE [Suspect]
     Indication: B-CELL LYMPHOMA
     Route: 042
     Dates: start: 20120905, end: 20120905
  4. DEXAMETHASONE [Concomitant]
     Indication: B-CELL LYMPHOMA
     Route: 048
     Dates: start: 20120905, end: 20120905
  5. CYCLOPHOSPHAMIDE [Concomitant]
  6. HYDROXYDAUNORUBICIN [Concomitant]
  7. ONCOVIN [Concomitant]
  8. PREDNISONE [Concomitant]

REACTIONS (2)
  - Acute respiratory distress syndrome [Recovered/Resolved]
  - Pulmonary alveolar haemorrhage [Recovered/Resolved]
